FAERS Safety Report 7970524-9 (Version None)
Quarter: 2011Q4

REPORT INFORMATION
  Report Type: 
  Country: None (occurrence: None)
  Receive Date: 20111212
  Receipt Date: 20111209
  Transmission Date: 20120403
  Serious: Yes (Other)
  Sender: FDA-Public Use
  Company Number: US-B.I. PHARMACEUTICALS,INC./RIDGEFIELD-2011-BP-26730BP

PATIENT
  Sex: Female

DRUGS (10)
  1. FLOBE [Concomitant]
     Indication: VITAMIN SUPPLEMENTATION
     Route: 048
  2. LEVOTHYROXINE SODIUM [Concomitant]
     Indication: HYPOTHYROIDISM
     Route: 048
  3. GABAPENTIN [Concomitant]
     Indication: TRIGEMINAL NEURALGIA
     Route: 048
  4. HYDROCORTISONE [Concomitant]
     Route: 048
  5. POTASSIUM ACETATE [Concomitant]
     Indication: SUPPLEMENTATION THERAPY
     Route: 048
  6. SPIRIVA [Suspect]
     Indication: CHRONIC OBSTRUCTIVE PULMONARY DISEASE
     Dosage: 18 MCG
     Dates: start: 20010101, end: 20071201
  7. BROMOCRIPTINE MESYLATE [Concomitant]
     Indication: HYPOTHALAMO-PITUITARY DISORDER
     Route: 048
  8. SPIRIVA [Suspect]
     Dosage: 18 MCG
     Route: 055
     Dates: start: 20080101
  9. OMEPRAZOLE [Concomitant]
     Indication: GASTROOESOPHAGEAL REFLUX DISEASE
     Route: 048
  10. LASIX [Concomitant]
     Indication: HYPERTENSION
     Route: 048

REACTIONS (2)
  - NASOPHARYNGEAL CANCER [None]
  - METASTATIC NEOPLASM [None]
